FAERS Safety Report 4966365-7 (Version None)
Quarter: 2006Q2

REPORT INFORMATION
  Report Type: 
  Country: None (occurrence: None)
  Receive Date: 20060407
  Receipt Date: 20060222
  Transmission Date: 20061013
  Serious: Yes (Life-Threatening, Hospitalization)
  Sender: FDA-Public Use
  Company Number: JP-MERCK-0602USA05646

PATIENT
  Age: 63 Year
  Sex: Female
  Weight: 48 kg

DRUGS (6)
  1. ALDOMET [Suspect]
     Indication: HYPERTENSION
     Route: 048
     Dates: start: 20060207, end: 20060214
  2. ALDOMET [Suspect]
     Route: 048
     Dates: start: 20051217, end: 20060206
  3. ALDOMET [Suspect]
     Route: 048
     Dates: start: 20060215, end: 20060220
  4. COZAAR [Concomitant]
     Indication: HYPERTENSION
     Route: 048
     Dates: start: 20050301
  5. NORVASC [Concomitant]
     Indication: HYPERTENSION
     Route: 048
     Dates: start: 20050301
  6. ARTIST [Concomitant]
     Route: 048
     Dates: start: 20051019

REACTIONS (2)
  - CEREBROVASCULAR INSUFFICIENCY [None]
  - DYSKINESIA [None]
